FAERS Safety Report 9112491 (Version 2)
Quarter: 2013Q1

REPORT INFORMATION
  Report Type: Report from Study
  Country: US (occurrence: US)
  Receive Date: 20130211
  Receipt Date: 20130312
  Transmission Date: 20140127
  Serious: Yes (Death)
  Sender: FDA-Public Use
  Company Number: US-ASTELLAS-2013US001387

PATIENT
  Age: 54 Year
  Sex: Male

DRUGS (1)
  1. ERLOTINIB TABLET [Suspect]
     Indication: LUNG CARCINOMA CELL TYPE UNSPECIFIED STAGE 0
     Dosage: 200 MG, UID/QD
     Route: 048
     Dates: start: 20120816, end: 201301

REACTIONS (2)
  - Incorrect dose administered [Unknown]
  - Malignant neoplasm progression [Fatal]
